FAERS Safety Report 9413000 (Version 1)
Quarter: 2013Q3

REPORT INFORMATION
  Report Type: Spontaneous
  Country: US (occurrence: US)
  Receive Date: 20130722
  Receipt Date: 20130722
  Transmission Date: 20140515
  Serious: Yes (Other)
  Sender: FDA-Public Use
  Company Number: US-GLAXOSMITHKLINE-A1033093A

PATIENT
  Age: 62 Year
  Sex: Male

DRUGS (3)
  1. PROMACTA [Suspect]
     Indication: IMMUNE THROMBOCYTOPENIC PURPURA
     Dosage: 50MG PER DAY
     Route: 048
     Dates: start: 20130628, end: 20130712
  2. VYTORIN [Concomitant]
  3. METOPROLOL [Concomitant]

REACTIONS (1)
  - Rash erythematous [Not Recovered/Not Resolved]
